FAERS Safety Report 14368045 (Version 1)
Quarter: 2018Q1

REPORT INFORMATION
  Report Type: Spontaneous
  Country: US (occurrence: US)
  Receive Date: 20180109
  Receipt Date: 20180109
  Transmission Date: 20180509
  Serious: Yes (Life-Threatening, Hospitalization, Disabling)
  Sender: FDA-Public Use
  Company Number: None

PATIENT
  Sex: Female
  Weight: 81 kg

DRUGS (8)
  1. LISINOPRIL. [Suspect]
     Active Substance: LISINOPRIL
     Indication: HYPERTENSION
     Route: 048
     Dates: start: 20170801, end: 20180107
  2. PROAIR INHALER [Concomitant]
     Active Substance: ALBUTEROL SULFATE
  3. LISINOPRIL. [Concomitant]
     Active Substance: LISINOPRIL
  4. VITAMIN B12 [Concomitant]
     Active Substance: CYANOCOBALAMIN
  5. IRON [Concomitant]
     Active Substance: IRON
  6. ADVAIR HFA [Concomitant]
     Active Substance: FLUTICASONE PROPIONATE\SALMETEROL XINAFOATE
  7. MONTELUKAST SODIUM. [Concomitant]
     Active Substance: MONTELUKAST SODIUM
  8. D [Concomitant]

REACTIONS (4)
  - Angioedema [None]
  - Aspiration [None]
  - Myocardial infarction [None]
  - Transient ischaemic attack [None]

NARRATIVE: CASE EVENT DATE: 20180107
